FAERS Safety Report 6298095-6 (Version None)
Quarter: 2009Q3

REPORT INFORMATION
  Report Type: 
  Country: None (occurrence: None)
  Receive Date: 20090804
  Receipt Date: 20090804
  Transmission Date: 20100115
  Serious: Yes (Hospitalization)
  Sender: FDA-Public Use
  Company Number: None

PATIENT
  Age: 32 Year
  Sex: Female
  Weight: 93.8946 kg

DRUGS (1)
  1. SEASONALE [Suspect]
     Indication: CONTRACEPTION
     Dosage: 0.03/0.15, EVERY DAY, PO
     Route: 048
     Dates: start: 20080901, end: 20090201

REACTIONS (3)
  - ARRHYTHMIA [None]
  - PALPITATIONS [None]
  - SYNCOPE [None]
